FAERS Safety Report 15310999 (Version 3)
Quarter: 2018Q3

REPORT INFORMATION
  Report Type: Spontaneous
  Country: DE (occurrence: DE)
  Receive Date: 20180823
  Receipt Date: 20180823
  Transmission Date: 20181010
  Serious: Yes (Congenital Anomaly, Other)
  Sender: FDA-Public Use
  Company Number: PHHY2018DE077580

PATIENT

DRUGS (3)
  1. METFORMIN [Suspect]
     Active Substance: METFORMIN HYDROCHLORIDE
     Indication: FOETAL EXPOSURE DURING PREGNANCY
     Dosage: UNK
     Route: 064
  2. FOLIC ACID. [Suspect]
     Active Substance: FOLIC ACID
     Indication: FOETAL EXPOSURE DURING PREGNANCY
     Route: 064
  3. PREDNISOLONE. [Suspect]
     Active Substance: PREDNISOLONE
     Indication: FOETAL EXPOSURE DURING PREGNANCY
     Route: 064

REACTIONS (6)
  - Hypoplastic left heart syndrome [Unknown]
  - Congenital choroid plexus cyst [Unknown]
  - Congenital cystic kidney disease [Unknown]
  - Cytogenetic abnormality [Unknown]
  - Asplenia [Unknown]
  - Foetal exposure during pregnancy [Unknown]
